FAERS Safety Report 10268854 (Version 1)
Quarter: 2014Q2

REPORT INFORMATION
  Report Type: Spontaneous
  Country: AU (occurrence: AU)
  Receive Date: 20140630
  Receipt Date: 20140630
  Transmission Date: 20141212
  Serious: Yes (Other)
  Sender: FDA-Public Use
  Company Number: AU-GLAXOSMITHKLINE-B0995289A

PATIENT
  Sex: Female

DRUGS (4)
  1. LAMICTAL [Suspect]
     Indication: EPILEPSY
     Dosage: 200MG UNKNOWN
     Route: 048
     Dates: start: 201402
  2. ACIMAX [Concomitant]
  3. SERETIDE [Concomitant]
  4. SIMVASTATIN [Concomitant]

REACTIONS (3)
  - Convulsion [Recovering/Resolving]
  - Dysarthria [Unknown]
  - Disorientation [Recovering/Resolving]
